FAERS Safety Report 5173164-2 (Version None)
Quarter: 2006Q4

REPORT INFORMATION
  Report Type: 
  Country: None (occurrence: None)
  Receive Date: 20061208
  Receipt Date: 20061208
  Transmission Date: 20070319
  Serious: No
  Sender: FDA-Public Use
  Company Number: None

PATIENT

DRUGS (1)
  1. GAMMAGARD S/D [Suspect]
     Indication: IMMUNODEFICIENCY COMMON VARIABLE
     Dosage: 30 GRAMS  EVERY MONTH  IV DRIP
     Route: 041
     Dates: start: 20061206, end: 20061206

REACTIONS (1)
  - MEDICATION ERROR [None]
